FAERS Safety Report 10189067 (Version 1)
Quarter: 2014Q2

REPORT INFORMATION
  Report Type: Spontaneous
  Country: AT (occurrence: AT)
  Receive Date: 20140522
  Receipt Date: 20140522
  Transmission Date: 20141212
  Serious: Yes (Death, Hospitalization)
  Sender: FDA-Public Use
  Company Number: AT-ACTELION-A-CH2014-99151

PATIENT
  Age: 50 Year
  Sex: Female

DRUGS (9)
  1. TRACLEER [Suspect]
     Indication: PULMONARY HYPERTENSION
     Dosage: 125 MG, BID
     Route: 048
     Dates: start: 200805, end: 201312
  2. PROCORALAN [Concomitant]
     Dosage: 7.5 MG, UNK
  3. EUTHYROX [Concomitant]
     Dosage: 125 MCG, UNK
  4. LASIX [Concomitant]
     Dosage: 40 MG, UNK
  5. SPIROBENE [Concomitant]
  6. CYMBALTA [Concomitant]
     Dosage: 60 MG, UNK
  7. PANTOLOC [Concomitant]
     Dosage: 40 MG, UNK
  8. SPIRIVA HANDIHALER [Concomitant]
  9. OXIS TURBOHALER [Concomitant]

REACTIONS (1)
  - Right ventricular failure [Fatal]
